APPROVED DRUG PRODUCT: VANCOMYCIN HYDROCHLORIDE
Active Ingredient: VANCOMYCIN HYDROCHLORIDE
Strength: EQ 10GM BASE/VIAL
Dosage Form/Route: INJECTABLE;INJECTION
Application: A091554 | Product #001 | TE Code: AP
Applicant: MYLAN LABORATORIES LTD
Approved: Sep 19, 2011 | RLD: No | RS: Yes | Type: RX